FAERS Safety Report 17219153 (Version 1)
Quarter: 2019Q4

REPORT INFORMATION
  Report Type: Spontaneous
  Country: KR (occurrence: KR)
  Receive Date: 20191231
  Receipt Date: 20191231
  Transmission Date: 20200122
  Serious: Yes (Other)
  Sender: FDA-Public Use
  Company Number: US-SLATE RUN PHARMACEUTICALS-SLTR-AE-19-126

PATIENT
  Sex: Male

DRUGS (1)
  1. 70436-089-55 GANCICLOVIR FOR INJECTION DRY VIAL USP 500 MG [Suspect]
     Active Substance: GANCICLOVIR SODIUM
     Indication: CYTOMEGALOVIRUS CHORIORETINITIS
     Dosage: 15MG/0.3ML INSTEAD OF 2MG/0.04ML

REACTIONS (6)
  - Medication error [Unknown]
  - Overdose [Unknown]
  - Retinopathy [Not Recovered/Not Resolved]
  - Maculopathy [Not Recovered/Not Resolved]
  - Optic atrophy [Not Recovered/Not Resolved]
  - Blindness [Not Recovered/Not Resolved]
